FAERS Safety Report 15419512 (Version 1)
Quarter: 2018Q3

REPORT INFORMATION
  Report Type: Spontaneous
  Country: US (occurrence: US)
  Receive Date: 20180924
  Receipt Date: 20180924
  Transmission Date: 20181010
  Serious: No
  Sender: FDA-Public Use
  Company Number: US-SA-2018SA264038

PATIENT
  Age: 78 Year
  Sex: Female

DRUGS (1)
  1. DULCOLAX NOS [Suspect]
     Active Substance: BISACODYL OR DOCUSATE SODIUM
     Dosage: 1 DF
     Dates: start: 20180919

REACTIONS (4)
  - Abdominal pain [Unknown]
  - Hyperhidrosis [Unknown]
  - Chills [Unknown]
  - Gait disturbance [Unknown]
